FAERS Safety Report 24564204 (Version 2)
Quarter: 2024Q4

REPORT INFORMATION
  Report Type: Spontaneous
  Country: US (occurrence: US)
  Receive Date: 20241030
  Receipt Date: 20241225
  Transmission Date: 20250115
  Serious: No
  Sender: BIOGEN
  Company Number: US-BIOGEN-2024BI01288405

PATIENT
  Sex: Male

DRUGS (18)
  1. SPINRAZA [Suspect]
     Active Substance: NUSINERSEN
     Indication: Spinal muscular atrophy
     Route: 050
     Dates: start: 201707
  2. ASPIRIN [Concomitant]
     Active Substance: ASPIRIN
     Indication: Product used for unknown indication
     Route: 050
  3. AZELASTINE [Concomitant]
     Active Substance: AZELASTINE
     Indication: Product use in unapproved indication
     Route: 050
  4. LOTRISONE [Concomitant]
     Active Substance: BETAMETHASONE DIPROPIONATE\CLOTRIMAZOLE
     Indication: Product use in unapproved indication
     Dosage: 1-0.5%
     Route: 050
  5. CYMBALTA [Concomitant]
     Active Substance: DULOXETINE HYDROCHLORIDE
     Indication: Product use in unapproved indication
     Route: 050
  6. LOVENOX [Concomitant]
     Active Substance: ENOXAPARIN SODIUM
     Indication: Product use in unapproved indication
     Route: 050
  7. COZAAR [Concomitant]
     Active Substance: LOSARTAN POTASSIUM
     Indication: Product use in unapproved indication
     Route: 050
  8. GLUCOPHAGE [Concomitant]
     Active Substance: METFORMIN HYDROCHLORIDE
     Indication: Product use in unapproved indication
     Route: 050
  9. FISH OIL [Concomitant]
     Active Substance: FISH OIL
     Indication: Product use in unapproved indication
     Route: 050
  10. OMEGA-3 ACIDS [Concomitant]
     Active Substance: OMEGA-3 FATTY ACIDS
     Indication: Product use in unapproved indication
     Route: 050
  11. CYANOCOBALAMIN\FOLIC ACID\IRON [Concomitant]
     Active Substance: CYANOCOBALAMIN\FOLIC ACID\IRON
     Indication: Product use in unapproved indication
     Dosage: 150-25-1 MG-MCG-MG
     Route: 050
  12. UROCIT-K [Concomitant]
     Active Substance: POTASSIUM CITRATE
     Indication: Product use in unapproved indication
     Route: 050
  13. PRAVACHOL [Concomitant]
     Active Substance: PRAVASTATIN SODIUM
     Indication: Product use in unapproved indication
     Route: 050
  14. OZEMPIC [Concomitant]
     Active Substance: SEMAGLUTIDE
     Indication: Product use in unapproved indication
     Route: 050
  15. TENORMIN [Concomitant]
     Active Substance: ATENOLOL
     Indication: Product use in unapproved indication
     Dosage: 1/2 TABLET BY MOUTH
     Route: 050
  16. FOLVITE [Concomitant]
     Active Substance: FOLIC ACID
     Indication: Product used for unknown indication
     Route: 050
  17. CONDYLOX [Concomitant]
     Active Substance: PODOFILOX
     Indication: Product used for unknown indication
     Route: 050
  18. B12-Methyltetrahydrofolate-B6 [Concomitant]
     Indication: Product used for unknown indication
     Route: 050

REACTIONS (2)
  - Therapeutic response shortened [Unknown]
  - Muscular weakness [Unknown]
